FAERS Safety Report 19372312 (Version 1)
Quarter: 2021Q2

REPORT INFORMATION
  Report Type: Spontaneous
  Country: US (occurrence: US)
  Receive Date: 20210603
  Receipt Date: 20210603
  Transmission Date: 20210717
  Serious: No
  Sender: FDA-Public Use
  Company Number: None

PATIENT
  Age: 58 Year
  Sex: Male

DRUGS (1)
  1. MYCOPHENOLIC DR TAB 180MG [Suspect]
     Active Substance: MYCOPHENOLIC ACID
     Route: 048

REACTIONS (1)
  - Renal transplant failure [None]

NARRATIVE: CASE EVENT DATE: 20210603
